FAERS Safety Report 20382569 (Version 1)
Quarter: 2022Q1

REPORT INFORMATION
  Report Type: Spontaneous
  Country: US (occurrence: US)
  Receive Date: 20220127
  Receipt Date: 20220127
  Transmission Date: 20220423
  Serious: No
  Sender: FDA-Public Use
  Company Number: US-PCCINC-2021-PEL-000732

PATIENT

DRUGS (2)
  1. GABLOFEN [Suspect]
     Active Substance: BACLOFEN
     Indication: Product used for unknown indication
     Dosage: 21 MICROGRAM, QD
     Route: 037
  2. DILAUDID [Suspect]
     Active Substance: HYDROMORPHONE HYDROCHLORIDE
     Indication: Product used for unknown indication
     Dosage: 6 MG/ML AT 280 MCG/DAY
     Route: 037

REACTIONS (2)
  - Drug ineffective [Recovered/Resolved]
  - Device occlusion [Recovered/Resolved]
